FAERS Safety Report 4939966-X (Version None)
Quarter: 2006Q1

REPORT INFORMATION
  Report Type: 
  Country: None (occurrence: None)
  Receive Date: 20060307
  Receipt Date: 20060222
  Transmission Date: 20060701
  Serious: Yes (Hospitalization)
  Sender: FDA-Public Use
  Company Number: SUS1-2006-00088

PATIENT
  Age: 46 Year
  Sex: Female

DRUGS (5)
  1. PENTASA [Suspect]
     Indication: CROHN'S DISEASE
     Dosage: 4 G DAILY, ORAL
     Route: 048
     Dates: start: 20051001
  2. PREDNISOLONE [Suspect]
     Indication: CROHN'S DISEASE
     Dosage: 30 MG DAILY, ORAL
     Route: 048
     Dates: start: 20051229
  3. FLUOXETINE [Suspect]
     Dosage: 20 MG DAILY, ORAL
     Route: 048
     Dates: start: 20050501
  4. OMEPRAZOLE [Concomitant]
  5. LOPERAMIDE HCL [Concomitant]

REACTIONS (1)
  - PALPITATIONS [None]
